FAERS Safety Report 23168030 (Version 2)
Quarter: 2024Q1

REPORT INFORMATION
  Report Type: Report from Study
  Country: NL (occurrence: NL)
  Receive Date: 20231109
  Receipt Date: 20240110
  Transmission Date: 20240410
  Serious: Yes (Other)
  Sender: FDA-Public Use
  Company Number: NL-ABBVIE-5316378

PATIENT
  Sex: Male

DRUGS (7)
  1. CARBIDOPA\LEVODOPA [Suspect]
     Active Substance: CARBIDOPA\LEVODOPA
     Indication: Parkinson^s disease
     Route: 050
  2. CARBIDOPA\LEVODOPA [Suspect]
     Active Substance: CARBIDOPA\LEVODOPA
     Dosage: DURATION TEXT: REMAINS AT 16 HOURS
     Route: 050
     Dates: start: 20160309
  3. CARBIDOPA\LEVODOPA [Suspect]
     Active Substance: CARBIDOPA\LEVODOPA
     Dosage: MD: 5.2ML, CD: 5.0ML/H, ED: 2.0ML
     Route: 050
  4. CARBIDOPA\LEVODOPA [Suspect]
     Active Substance: CARBIDOPA\LEVODOPA
     Dosage: REMAINS AT 16 HOURS
     Route: 050
  5. CARBIDOPA\LEVODOPA [Suspect]
     Active Substance: CARBIDOPA\LEVODOPA
     Dosage: MD: 5.2ML, CD: 5.0ML/H, ED: 2.0ML;  REMAINS AT 16 HOURS
     Route: 050
     Dates: start: 20231031, end: 20240105
  6. CARBIDOPA\LEVODOPA [Suspect]
     Active Substance: CARBIDOPA\LEVODOPA
     Dosage: MD: 5.2 ML, CD: 4.7 ML/H, ED: 2.0 ML, DURATION TEXT: REMAINS AT 16 HOURS
     Route: 050
     Dates: start: 202401
  7. CARBIDOPA\LEVODOPA [Suspect]
     Active Substance: CARBIDOPA\LEVODOPA
     Dosage: MD: 5.2ML, CD: 5.0ML/H, ED: 2.0ML
     Route: 050

REACTIONS (22)
  - Depressed level of consciousness [Not Recovered/Not Resolved]
  - Restlessness [Not Recovered/Not Resolved]
  - Dyskinesia [Not Recovered/Not Resolved]
  - Pyrexia [Not Recovered/Not Resolved]
  - Muscle rigidity [Not Recovered/Not Resolved]
  - Hyperkinesia [Not Recovered/Not Resolved]
  - Sensory overload [Recovering/Resolving]
  - Device kink [Unknown]
  - Weight decreased [Not Recovered/Not Resolved]
  - Off label use [Not Recovered/Not Resolved]
  - Device connection issue [Unknown]
  - Hallucination [Unknown]
  - Heart rate increased [Not Recovered/Not Resolved]
  - Stoma site infection [Unknown]
  - Device dislocation [Unknown]
  - On and off phenomenon [Not Recovered/Not Resolved]
  - Fatigue [Not Recovered/Not Resolved]
  - Bruxism [Not Recovered/Not Resolved]
  - Memory impairment [Not Recovered/Not Resolved]
  - Walking aid user [Unknown]
  - Social avoidant behaviour [Not Recovered/Not Resolved]
  - Cognitive disorder [Not Recovered/Not Resolved]

NARRATIVE: CASE EVENT DATE: 20230101
